FAERS Safety Report 9186421 (Version 2)
Quarter: 2013Q3

REPORT INFORMATION
  Report Type: Spontaneous
  Country: US (occurrence: US)
  Receive Date: 20130325
  Receipt Date: 20130718
  Transmission Date: 20140515
  Serious: Yes (Hospitalization)
  Sender: FDA-Public Use
  Company Number: US-BAYER-2013-036784

PATIENT
  Age: 38 Year
  Sex: Female
  Weight: 68.03 kg

DRUGS (5)
  1. OCELLA [Suspect]
     Indication: ACNE
     Dosage: UNK
     Dates: start: 2005, end: 2006
  2. PAXIL [Concomitant]
  3. TRAZODONE [Concomitant]
  4. VISTARIL [Concomitant]
  5. ALBUTEROL [Concomitant]
     Dosage: MDI

REACTIONS (4)
  - Injury [None]
  - Pain [None]
  - Pain [None]
  - Pulmonary embolism [None]
